FAERS Safety Report 25942250 (Version 1)
Quarter: 2025Q4

REPORT INFORMATION
  Report Type: Report from Study
  Country: CA (occurrence: CA)
  Receive Date: 20251020
  Receipt Date: 20251020
  Transmission Date: 20260118
  Serious: Yes (Other)
  Sender: ABBVIE
  Company Number: US-ABBVIE-6502445

PATIENT
  Age: 86 Year
  Sex: Female

DRUGS (1)
  1. SKYRIZI [Suspect]
     Active Substance: RISANKIZUMAB-RZAA
     Indication: Crohn^s disease
     Route: 058
     Dates: start: 2023

REACTIONS (7)
  - Laparotomy [Unknown]
  - Crohn^s disease [Unknown]
  - Anorectal discomfort [Not Recovered/Not Resolved]
  - Skin disorder [Unknown]
  - Scar [Unknown]
  - Drug ineffective [Recovering/Resolving]
  - Frequent bowel movements [Unknown]
